FAERS Safety Report 6961108-X (Version None)
Quarter: 2010Q3

REPORT INFORMATION
  Report Type: 
  Country: None (occurrence: None)
  Receive Date: 20100823
  Receipt Date: 20100702
  Transmission Date: 20110219
  Serious: No
  Sender: FDA-Public Use
  Company Number: 015061

PATIENT
  Sex: Female
  Weight: 69.5 kg

DRUGS (3)
  1. CIMZIA [Suspect]
     Indication: RHEUMATOID ARTHRITIS
     Dosage: (400 MG 1X/2 WEEK SUBCUTANEOUS)
     Route: 058
     Dates: start: 20100601
  2. METHOTREXATE [Concomitant]
  3. INSULIN [Concomitant]

REACTIONS (1)
  - PAIN [None]
